FAERS Safety Report 6085667-7 (Version None)
Quarter: 2009Q1

REPORT INFORMATION
  Report Type: 
  Country: None (occurrence: None)
  Receive Date: 20090220
  Receipt Date: 20090209
  Transmission Date: 20090719
  Serious: Yes (Other)
  Sender: FDA-Public Use
  Company Number: GB-ROCHE-614397

PATIENT
  Sex: Female
  Weight: 90 kg

DRUGS (9)
  1. ORLISTAT [Suspect]
     Indication: OBESITY
     Route: 048
     Dates: start: 20080729
  2. METHOTREXATE [Concomitant]
     Route: 048
  3. BISOPROLOL [Concomitant]
     Route: 048
  4. PREDNISOLONE [Concomitant]
     Route: 048
  5. PREDNISOLONE [Concomitant]
     Dosage: INCREASED TO 30 MG UNTIL 14 FEB 2009.
     Route: 048
  6. TRAMADOL HCL [Concomitant]
     Route: 048
  7. FOLIC ACID [Concomitant]
     Route: 048
  8. ENBREL [Concomitant]
     Indication: ARTHRITIS
     Dosage: DRUG: ENEBREL; ROUTE: INJECTION
     Route: 050
  9. CYCLOPHOSPHAMIDE [Concomitant]
     Dosage: ROUTE: INFUSION; DRUG: INFUSION CYCLOPHOSPHAMIDE
     Route: 050

REACTIONS (1)
  - EYE EXCISION [None]
